FAERS Safety Report 19608940 (Version 2)
Quarter: 2021Q3

REPORT INFORMATION
  Report Type: Spontaneous
  Country: US (occurrence: US)
  Receive Date: 20210726
  Receipt Date: 20210809
  Transmission Date: 20211014
  Serious: Yes (Life-Threatening, Hospitalization, Other)
  Sender: FDA-Public Use
  Company Number: US-MACLEODS PHARMACEUTICALS US LTD-MAC2021031973

PATIENT

DRUGS (4)
  1. TRAZODONE [Suspect]
     Active Substance: TRAZODONE HYDROCHLORIDE
     Indication: PRODUCT USED FOR UNKNOWN INDICATION
     Dosage: 150 MILLIGRAM, QD
     Route: 064
  2. VENLAFAXINE [Suspect]
     Active Substance: VENLAFAXINE HYDROCHLORIDE
     Indication: PRODUCT USED FOR UNKNOWN INDICATION
     Dosage: 150 MILLIGRAM, QD, EXTENDED?RELEASE TABLET
     Route: 064
  3. SERTRALINE [Suspect]
     Active Substance: SERTRALINE HYDROCHLORIDE
     Indication: PRODUCT USED FOR UNKNOWN INDICATION
     Dosage: 200 MILLIGRAM, QD
     Route: 064
  4. BUSPIRONE [Suspect]
     Active Substance: BUSPIRONE HYDROCHLORIDE
     Indication: PRODUCT USED FOR UNKNOWN INDICATION
     Dosage: 5 MILLIGRAM, TID (8 HOUR)
     Route: 064

REACTIONS (16)
  - Hyperreflexia [Recovering/Resolving]
  - Hypertonia [Recovering/Resolving]
  - Serotonin syndrome [Recovering/Resolving]
  - Neonatal behavioural syndrome [Recovering/Resolving]
  - Small for dates baby [Unknown]
  - Poor feeding infant [Recovering/Resolving]
  - Finnegan score increased [Recovered/Resolved]
  - Foetal growth restriction [Unknown]
  - Hypoglycaemia [Unknown]
  - Myoclonus [Recovering/Resolving]
  - Pigmentation disorder [Recovering/Resolving]
  - Antidepressant discontinuation syndrome [Recovering/Resolving]
  - Tremor [Recovering/Resolving]
  - Feeling jittery [Recovering/Resolving]
  - Drug withdrawal syndrome neonatal [Recovering/Resolving]
  - Foetal exposure during pregnancy [Recovering/Resolving]
